FAERS Safety Report 5026094-0 (Version None)
Quarter: 2006Q2

REPORT INFORMATION
  Report Type: 
  Country: None (occurrence: None)
  Receive Date: 20060612
  Receipt Date: 20060612
  Transmission Date: 20061013
  Serious: Yes (Life-Threatening, Other)
  Sender: FDA-Public Use
  Company Number: None

PATIENT
  Age: 23 Year
  Sex: Male
  Weight: 58.9676 kg

DRUGS (1)
  1. ZOLOFT [Suspect]
     Indication: CHRONIC FATIGUE SYNDROME

REACTIONS (7)
  - BLOOD OESTROGEN INCREASED [None]
  - ERECTILE DYSFUNCTION [None]
  - LOSS OF LIBIDO [None]
  - SEXUAL DYSFUNCTION [None]
  - SPERMATOZOA ABNORMAL [None]
  - SUICIDAL IDEATION [None]
  - TESTICULAR DISORDER [None]
